FAERS Safety Report 7548364-4 (Version None)
Quarter: 2011Q2

REPORT INFORMATION
  Report Type: 
  Country: None (occurrence: None)
  Receive Date: 20110608
  Receipt Date: 20110520
  Transmission Date: 20111010
  Serious: Yes (Hospitalization)
  Sender: FDA-Public Use
  Company Number: 678394

PATIENT
  Age: 62 Year
  Sex: Male

DRUGS (6)
  1. NAVELBINE [Suspect]
     Indication: LUNG NEOPLASM MALIGNANT
     Dosage: 120 MG MILLIGRAM(S) ORAL
     Route: 048
     Dates: start: 20100713, end: 20100713
  2. BENDROFLUMETHIAZIDE [Concomitant]
  3. DALTEPARIN SODIUM [Concomitant]
  4. CANDESARTAN CILEXETIL [Suspect]
  5. CARBOPLATIN [Suspect]
     Indication: LUNG NEOPLASM MALIGNANT
     Dosage: 480 MG MILLIGRAM(S)  INTRAVENOUS (NOT OTHERWISE SPECIFIED)
     Route: 042
     Dates: start: 20100713, end: 20100713
  6. FOLIC ACID [Concomitant]

REACTIONS (9)
  - DIVERTICULAR PERFORATION [None]
  - FEMORAL ARTERY OCCLUSION [None]
  - MALAISE [None]
  - ILIAC ARTERY EMBOLISM [None]
  - LEG AMPUTATION [None]
  - PERIPHERAL ISCHAEMIA [None]
  - ARTERIAL STENOSIS [None]
  - SEPSIS [None]
  - ABDOMINAL RIGIDITY [None]
